FAERS Safety Report 7791602-3 (Version None)
Quarter: 2011Q4

REPORT INFORMATION
  Report Type: 
  Country: None (occurrence: None)
  Receive Date: 20111003
  Receipt Date: 20110927
  Transmission Date: 20120403
  Serious: Yes (Death, Other)
  Sender: FDA-Public Use
  Company Number: AT-ASTELLAS-2011EU006678

PATIENT
  Age: 70 Year
  Sex: Male
  Weight: 72 kg

DRUGS (2)
  1. PROGRAF [Suspect]
     Dosage: 4 MG, UNKNOWN/D
     Route: 048
     Dates: start: 20101111
  2. APREDNISLON [Concomitant]
     Dosage: UNK
     Route: 048
     Dates: start: 20101213

REACTIONS (4)
  - ENTERITIS [None]
  - PNEUMONIA [None]
  - CARDIAC FAILURE [None]
  - SEPSIS [None]
